FAERS Safety Report 13903232 (Version 1)
Quarter: 2017Q3

REPORT INFORMATION
  Report Type: Other
  Country: CA (occurrence: CA)
  Receive Date: 20170824
  Receipt Date: 20170824
  Transmission Date: 20171127
  Serious: Yes (Other)
  Sender: FDA-Public Use
  Company Number: CA-APOTEX-2017AP016916

PATIENT
  Age: 48 Year
  Sex: Female

DRUGS (7)
  1. RUB A535 CAPSAICIN [Suspect]
     Active Substance: CAPSAICIN
     Indication: LIGAMENT SPRAIN
     Dosage: UNK
     Route: 061
  2. MOMETASONE FUROATE. [Concomitant]
     Active Substance: MOMETASONE FUROATE
     Indication: PRODUCT USED FOR UNKNOWN INDICATION
     Dosage: UNK
     Route: 065
  3. APO-DICLOFENAC [Suspect]
     Active Substance: DICLOFENAC
     Indication: LIGAMENT SPRAIN
     Dosage: UNK
     Route: 061
  4. APO-DICLOFENAC [Suspect]
     Active Substance: DICLOFENAC
     Indication: JOINT INJURY
  5. RUB A535 CAPSAICIN [Suspect]
     Active Substance: CAPSAICIN
     Indication: JOINT INJURY
  6. CLARITIN [Concomitant]
     Active Substance: LORATADINE
     Indication: PRODUCT USED FOR UNKNOWN INDICATION
     Dosage: UNK
     Route: 065
  7. XOLAIR [Suspect]
     Active Substance: OMALIZUMAB
     Indication: ASTHMA
     Dosage: 300 MG, UNK
     Route: 058

REACTIONS (10)
  - Dyspnoea [Recovered/Resolved]
  - Insomnia [Recovered/Resolved]
  - Wheezing [Recovered/Resolved]
  - Anaphylactic reaction [Recovered/Resolved]
  - Ligament sprain [Recovered/Resolved]
  - Hypersensitivity [Recovered/Resolved]
  - Joint injury [Recovered/Resolved]
  - Injection site pruritus [Recovered/Resolved]
  - Injection site swelling [Recovered/Resolved]
  - Pruritus [Recovered/Resolved]
